FAERS Safety Report 7645845-X (Version None)
Quarter: 2011Q3

REPORT INFORMATION
  Report Type: 
  Country: None (occurrence: None)
  Receive Date: 20110729
  Receipt Date: 20110718
  Transmission Date: 20111222
  Serious: Yes (Other)
  Sender: FDA-Public Use
  Company Number: PHFR2011GB04352

PATIENT
  Sex: Female

DRUGS (2)
  1. HORMONES NOS [Concomitant]
     Route: 065
  2. TEGRETOL [Suspect]
     Route: 065

REACTIONS (1)
  - ANAPHYLACTIC SHOCK [None]
